FAERS Safety Report 9886323 (Version 1)
Quarter: 2014Q1

REPORT INFORMATION
  Report Type: Spontaneous
  Country: GB (occurrence: GB)
  Receive Date: 20140210
  Receipt Date: 20140210
  Transmission Date: 20141002
  Serious: Yes (Hospitalization)
  Sender: FDA-Public Use
  Company Number: GB-B.I. PHARMACEUTICALS,INC./RIDGEFIELD-2014-BI-05498UK

PATIENT
  Sex: Male

DRUGS (4)
  1. TRAJENTA [Suspect]
     Indication: PRODUCT USED FOR UNKNOWN INDICATION
  2. METFORMIN [Concomitant]
  3. SIMVASTATIN [Concomitant]
  4. GLIMEPIRIDE [Concomitant]

REACTIONS (1)
  - Cholestasis [Unknown]
